FAERS Safety Report 12915156 (Version 1)
Quarter: 2016Q4

REPORT INFORMATION
  Report Type: Spontaneous
  Country: US (occurrence: US)
  Receive Date: 20161106
  Receipt Date: 20161106
  Transmission Date: 20170207
  Serious: No
  Sender: FDA-Public Use
  Company Number: US-RELYPSA-RLY2016002518

PATIENT
  Sex: Female

DRUGS (3)
  1. VELTASSA [Suspect]
     Active Substance: PATIROMER
     Indication: BLOOD POTASSIUM ABNORMAL
     Dosage: UNK, QD
     Route: 065
     Dates: start: 20160914
  2. VELTASSA [Suspect]
     Active Substance: PATIROMER
     Dosage: UNK, 3X/WEEK
     Route: 065
  3. VELTASSA [Suspect]
     Active Substance: PATIROMER
     Dosage: UNK, QD
     Route: 065

REACTIONS (3)
  - Inappropriate schedule of drug administration [Recovered/Resolved]
  - Drug ineffective [Unknown]
  - Diarrhoea [Unknown]
